FAERS Safety Report 13622073 (Version 1)
Quarter: 2017Q2

REPORT INFORMATION
  Report Type: Spontaneous
  Country: US (occurrence: US)
  Receive Date: 20170607
  Receipt Date: 20170607
  Transmission Date: 20170830
  Serious: No
  Sender: FDA-Public Use
  Company Number: US-ROCHE-1336069

PATIENT
  Age: 73 Year
  Sex: Female

DRUGS (2)
  1. TRETINOIN. [Suspect]
     Active Substance: TRETINOIN
     Indication: ACUTE PROMYELOCYTIC LEUKAEMIA
     Route: 048
  2. TRETINOIN. [Suspect]
     Active Substance: TRETINOIN
     Dosage: DOSE REDUCED AND RECEIVED IN TWO DIVIDED DOSES
     Route: 048

REACTIONS (2)
  - Nail discolouration [Recovered/Resolved]
  - Dry skin [Recovered/Resolved]
